FAERS Safety Report 9098677 (Version 1)
Quarter: 2013Q1

REPORT INFORMATION
  Report Type: Spontaneous
  Country: US (occurrence: US)
  Receive Date: 20130213
  Receipt Date: 20130213
  Transmission Date: 20140127
  Serious: No
  Sender: FDA-Public Use
  Company Number: US-ALLERGAN-1215916US

PATIENT
  Age: 69 Year
  Sex: Female

DRUGS (19)
  1. LASTACAFT [Suspect]
     Indication: DRY EYE
     Dosage: 2 GTT, BID
     Route: 047
     Dates: start: 201209, end: 20121113
  2. TACROLIMUS [Concomitant]
     Indication: ECZEMA
     Dosage: UNK, PRN
  3. CLARINEX [Concomitant]
     Indication: PRODUCT USED FOR UNKNOWN INDICATION
     Dosage: UNK
     Route: 048
  4. SINGULAIR [Concomitant]
     Indication: PRODUCT USED FOR UNKNOWN INDICATION
     Dosage: UNK
     Route: 048
  5. ADVAIR [Concomitant]
     Indication: PRODUCT USED FOR UNKNOWN INDICATION
     Dosage: UNK
     Route: 055
  6. FLONASE [Concomitant]
     Dosage: UNK
     Route: 045
  7. PATANOL [Concomitant]
     Indication: PRODUCT USED FOR UNKNOWN INDICATION
     Dosage: 2 GTT, BID
     Route: 047
  8. PULMICORT [Concomitant]
     Indication: NASAL IRRIGATION
     Dosage: UNK
     Route: 045
  9. NEILMED [Concomitant]
     Indication: NASAL IRRIGATION
     Dosage: UNK
     Route: 045
  10. ALLERGY DROPS NOS [Concomitant]
     Indication: HYPERSENSITIVITY
     Dosage: UNK
     Route: 060
  11. ZOLAR [Concomitant]
     Indication: HYPERSENSITIVITY
     Dosage: UNK
  12. NEXIUM [Concomitant]
     Indication: DYSPEPSIA
     Dosage: 40 MG, PRN
     Route: 048
  13. ALBUTEROL [Concomitant]
     Indication: PRODUCT USED FOR UNKNOWN INDICATION
     Dosage: UNK
     Route: 055
  14. RESTASIS? [Concomitant]
     Indication: PRODUCT USED FOR UNKNOWN INDICATION
     Dosage: 2 GTT, BID
     Route: 047
  15. XOPENEX [Concomitant]
     Indication: PRODUCT USED FOR UNKNOWN INDICATION
     Dosage: UNK
     Route: 055
  16. HYTONE [Concomitant]
     Indication: ECZEMA
     Dosage: UNK, PRN
     Route: 061
  17. MUCINEX [Concomitant]
     Indication: PRODUCT USED FOR UNKNOWN INDICATION
     Dosage: 1200 MG, BID
     Route: 048
  18. MAXALT [Concomitant]
     Indication: MIGRAINE
     Dosage: 10 MG, PRN
     Route: 048
  19. FLUOCINONIDE [Concomitant]
     Indication: PRODUCT USED FOR UNKNOWN INDICATION
     Dosage: UNK, PRN
     Route: 061

REACTIONS (4)
  - Ocular hyperaemia [Not Recovered/Not Resolved]
  - Eye irritation [Not Recovered/Not Resolved]
  - Eye irritation [Not Recovered/Not Resolved]
  - Drug ineffective [Unknown]
